FAERS Safety Report 11281427 (Version 2)
Quarter: 2015Q3

REPORT INFORMATION
  Report Type: Spontaneous
  Country: US (occurrence: US)
  Receive Date: 20150717
  Receipt Date: 20150821
  Transmission Date: 20151125
  Serious: Yes (Other)
  Sender: FDA-Public Use
  Company Number: US-PFIZER INC-2015237651

PATIENT
  Age: 59 Year
  Sex: Female
  Weight: 69 kg

DRUGS (7)
  1. LIPITOR [Suspect]
     Active Substance: ATORVASTATIN CALCIUM
     Dosage: 20 MG, DAILY
     Route: 048
     Dates: start: 200407, end: 201006
  2. OSTEO BI FLEX [Concomitant]
     Indication: ARTHROPATHY
     Dosage: 2 DF, DAILY
     Dates: start: 2000
  3. COMPLETE SENIOR MULTIVITAMIN [Concomitant]
     Indication: ROUTINE HEALTH MAINTENANCE
     Dosage: 1 DF, DAILY
     Dates: start: 2000
  4. OSTEO BI FLEX [Concomitant]
     Indication: VITAMIN SUPPLEMENTATION
  5. LIPITOR [Suspect]
     Active Substance: ATORVASTATIN CALCIUM
     Indication: BLOOD CHOLESTEROL INCREASED
     Dosage: 10 MG, DAILY
     Route: 048
     Dates: start: 200304, end: 200407
  6. ADVIL [Concomitant]
     Active Substance: IBUPROFEN
     Indication: DYSMENORRHOEA
     Dosage: 500 MG, AS NEEDED
  7. ADVIL [Concomitant]
     Active Substance: IBUPROFEN
     Indication: PAIN

REACTIONS (3)
  - Type 2 diabetes mellitus [Not Recovered/Not Resolved]
  - Blood glucose increased [Not Recovered/Not Resolved]
  - Cataract [Unknown]

NARRATIVE: CASE EVENT DATE: 200612
